FAERS Safety Report 4779533-4 (Version None)
Quarter: 2005Q3

REPORT INFORMATION
  Report Type: 
  Country: None (occurrence: None)
  Receive Date: 20050914
  Receipt Date: 20040923
  Transmission Date: 20060218
  Serious: Yes (Death, Life-Threatening, Hospitalization)
  Sender: FDA-Public Use
  Company Number: 163-20785-04060384

PATIENT
  Age: 49 Year
  Sex: Male

DRUGS (7)
  1. THALOMID [Suspect]
     Indication: METASTATIC MALIGNANT MELANOMA
     Dosage: 100 MG, QD X 8 WEEK CYCLE, ORAL
     Route: 048
     Dates: start: 20040510, end: 20040622
  2. TEMODAR [Suspect]
     Indication: METASTATIC MALIGNANT MELANOMA
     Dosage: 160 MG, QD X 6 WEEKS/8 WEEK CYCLE
     Dates: start: 20040501
  3. DECADRON [Concomitant]
  4. ZOFRAN [Concomitant]
  5. AMBIEN (ZOLPIDEM  TARTRATE) (UNKNOWN) [Concomitant]
  6. ATIVAN [Concomitant]
  7. CELEXA (CITALOPRAM HYDROBROMIDE) (UNKNOWN) [Concomitant]

REACTIONS (5)
  - CONFUSIONAL STATE [None]
  - DEEP VEIN THROMBOSIS [None]
  - DISEASE PROGRESSION [None]
  - HAEMATOCRIT DECREASED [None]
  - PLATELET COUNT DECREASED [None]
